FAERS Safety Report 6784078-6 (Version None)
Quarter: 2010Q2

REPORT INFORMATION
  Report Type: 
  Country: None (occurrence: None)
  Receive Date: 20100622
  Receipt Date: 20100617
  Transmission Date: 20101027
  Serious: Yes (Death)
  Sender: FDA-Public Use
  Company Number: DE-CELGENEUS-062-50794-10061917

PATIENT
  Age: 72 Year
  Sex: Female

DRUGS (4)
  1. VIDAZA [Suspect]
     Route: 058
     Dates: start: 20090701, end: 20091201
  2. RED BLOOD CELLS [Concomitant]
     Indication: DRUG USE FOR UNKNOWN INDICATION
     Route: 051
  3. PLATELETS [Concomitant]
     Indication: DRUG USE FOR UNKNOWN INDICATION
     Route: 051
  4. ANTIBIOTICS [Concomitant]
     Indication: PROPHYLAXIS
     Route: 065

REACTIONS (1)
  - DEATH [None]
